FAERS Safety Report 6086741-1 (Version None)
Quarter: 2009Q1

REPORT INFORMATION
  Report Type: 
  Country: None (occurrence: None)
  Receive Date: 20090223
  Receipt Date: 20090217
  Transmission Date: 20090719
  Serious: Yes (Hospitalization, Disabling)
  Sender: FDA-Public Use
  Company Number: BR-ASTRAZENECA-2009UW04721

PATIENT
  Age: 78 Year
  Sex: Male

DRUGS (11)
  1. ATACAND [Suspect]
     Indication: HYPERTENSION
     Route: 048
  2. INSULIN [Concomitant]
     Indication: DIABETES MELLITUS
     Route: 058
  3. GLIFAGE [Concomitant]
     Indication: DIABETES MELLITUS
     Dosage: 850MG;
     Route: 048
  4. SECODEX [Concomitant]
     Indication: ILL-DEFINED DISORDER
     Route: 048
  5. MODURETIC 5-50 [Concomitant]
     Indication: HYPERTENSION
     Dosage: 50.5MG
     Route: 048
  6. APRESSOLINA [Concomitant]
     Indication: HYPERTENSION
     Dosage: 25MG
     Route: 048
  7. MANIVAX [Concomitant]
     Dosage: 10MG
     Route: 048
  8. ASPIRIN [Concomitant]
     Route: 048
  9. SIMVASTATINA [Concomitant]
     Indication: HYPERCHOLESTEROLAEMIA
     Route: 048
  10. ATENOLOL [Concomitant]
     Indication: HYPERTENSION
     Dosage: 25MG
     Route: 048
  11. SERTRALINE [Concomitant]
     Indication: INSOMNIA
     Dosage: 50MG
     Route: 048

REACTIONS (3)
  - BLOOD PRESSURE ABNORMAL [None]
  - CARTILAGE INJURY [None]
  - NASAL ABSCESS [None]
